FAERS Safety Report 10157921 (Version 1)
Quarter: 2014Q2

REPORT INFORMATION
  Report Type: Spontaneous
  Country: FR (occurrence: FR)
  Receive Date: 20140507
  Receipt Date: 20140507
  Transmission Date: 20141212
  Serious: Yes (Other)
  Sender: FDA-Public Use
  Company Number: FR-009507513-1405FRA002056

PATIENT
  Age: 48 Year
  Sex: Female

DRUGS (7)
  1. EZETROL [Suspect]
     Dosage: 10 MG, UNK
  2. PARIET [Suspect]
     Dosage: UNK
     Route: 048
     Dates: end: 20140327
  3. SIMVASTATIN [Suspect]
     Route: 048
  4. QUESTRAN [Suspect]
     Route: 048
  5. LIPANOR [Suspect]
     Dosage: 100 MG, UNK
     Route: 048
  6. LIPANTHYL [Suspect]
     Route: 048
  7. NIASPAN [Suspect]
     Route: 048

REACTIONS (1)
  - Dermatomyositis [Not Recovered/Not Resolved]
